FAERS Safety Report 7906423-8 (Version None)
Quarter: 2011Q4

REPORT INFORMATION
  Report Type: 
  Country: None (occurrence: None)
  Receive Date: 20111110
  Receipt Date: 20111104
  Transmission Date: 20120403
  Serious: Yes (Hospitalization)
  Sender: FDA-Public Use
  Company Number: CH-AMGEN-CHECT2011054180

PATIENT
  Age: 90 Year
  Sex: Female

DRUGS (1)
  1. DENOSUMAB [Suspect]
     Indication: OSTEOPOROSIS POSTMENOPAUSAL
     Dosage: UNK UNK, Q6MO
     Route: 058
     Dates: start: 20080520, end: 20110720

REACTIONS (8)
  - DIVERTICULUM [None]
  - HEPATIC CYST [None]
  - DIVERTICULITIS [None]
  - THORACIC VERTEBRAL FRACTURE [None]
  - TEMPORAL ARTERITIS [None]
  - BRONCHIECTASIS [None]
  - RESPIRATORY TRACT INFECTION [None]
  - PERICARDIAL EFFUSION [None]
